FAERS Safety Report 5611258-5 (Version None)
Quarter: 2008Q1

REPORT INFORMATION
  Report Type: 
  Country: None (occurrence: None)
  Receive Date: 20080129
  Receipt Date: 20080115
  Transmission Date: 20080703
  Serious: Yes (Hospitalization)
  Sender: FDA-Public Use
  Company Number: 2008SP001300

PATIENT
  Age: 66 Year
  Sex: Female

DRUGS (2)
  1. PEG-INTRON [Suspect]
     Indication: HEPATITIS C
     Dates: start: 20071115
  2. RIBAVIRIN [Suspect]
     Indication: HEPATITIS C
     Dosage: PO
     Route: 048
     Dates: start: 20071115

REACTIONS (10)
  - ARTHRALGIA [None]
  - BALANCE DISORDER [None]
  - BLOOD DISORDER [None]
  - BLOOD PRESSURE INCREASED [None]
  - COUGH [None]
  - GAIT DISTURBANCE [None]
  - JOINT CREPITATION [None]
  - NASOPHARYNGITIS [None]
  - RESPIRATORY TRACT CONGESTION [None]
  - SKIN DISCOLOURATION [None]
